FAERS Safety Report 5310305-8 (Version None)
Quarter: 2007Q2

REPORT INFORMATION
  Report Type: 
  Country: None (occurrence: None)
  Receive Date: 20070427
  Receipt Date: 20070312
  Transmission Date: 20071010
  Serious: Yes (Other)
  Sender: FDA-Public Use
  Company Number: US-SANOFI-SYNTHELABO-A03200702299

PATIENT
  Sex: Male

DRUGS (6)
  1. EFFEXOR [Concomitant]
     Dosage: UNK
     Route: 048
  2. VIREAD [Concomitant]
     Indication: HIV INFECTION
     Dosage: UNK
     Route: 048
  3. COMBIVIR [Concomitant]
     Indication: HIV INFECTION
     Dosage: UNK
     Route: 048
  4. KALETRA [Concomitant]
     Indication: HIV INFECTION
     Dosage: UNK
     Route: 048
  5. AMBIEN [Suspect]
     Indication: INSOMNIA
     Dosage: 3-4 TIMES A WEEK
     Route: 048
     Dates: start: 20060101, end: 20060606
  6. ALCOHOL [Concomitant]

REACTIONS (4)
  - AMNESIA [None]
  - IMPAIRED DRIVING ABILITY [None]
  - ROAD TRAFFIC ACCIDENT [None]
  - SLEEP WALKING [None]
